FAERS Safety Report 6429095-0 (Version None)
Quarter: 2009Q4

REPORT INFORMATION
  Report Type: 
  Country: None (occurrence: None)
  Receive Date: 20091030
  Receipt Date: 20091021
  Transmission Date: 20100525
  Serious: Yes (Hospitalization)
  Sender: FDA-Public Use
  Company Number: 2009SP017154

PATIENT
  Age: 23 Year
  Sex: Female
  Weight: 47.6277 kg

DRUGS (1)
  1. NUVARING [Suspect]
     Indication: CONTRACEPTION
     Dosage: 1 DF; QM; VAG
     Route: 067
     Dates: start: 20050101, end: 20070325

REACTIONS (4)
  - CEREBROVASCULAR ACCIDENT [None]
  - DERMATITIS [None]
  - INTRACRANIAL VENOUS SINUS THROMBOSIS [None]
  - VAGINITIS BACTERIAL [None]
